FAERS Safety Report 16087794 (Version 1)
Quarter: 2019Q1

REPORT INFORMATION
  Report Type: Spontaneous
  Country: FR (occurrence: FR)
  Receive Date: 20190319
  Receipt Date: 20190319
  Transmission Date: 20190418
  Serious: Yes (Hospitalization, Other)
  Sender: FDA-Public Use
  Company Number: FR-ACCORD-113424

PATIENT
  Age: 61 Year
  Sex: Male
  Weight: 95.5 kg

DRUGS (6)
  1. FLUOROURACIL. [Suspect]
     Active Substance: FLUOROURACIL
     Indication: CHEMOTHERAPY
     Route: 042
  2. OXALIPLATIN. [Suspect]
     Active Substance: OXALIPLATIN
     Indication: CHEMOTHERAPY
     Route: 042
     Dates: start: 20181017, end: 20181017
  3. ZOPHREN [Suspect]
     Active Substance: ONDANSETRON
     Indication: PREMEDICATION
     Dosage: ZOPHREN 2 MG / ML
     Route: 042
     Dates: start: 20181017, end: 20181017
  4. SIMVASTATIN. [Suspect]
     Active Substance: SIMVASTATIN
     Indication: CHEMOTHERAPY
     Route: 042
     Dates: end: 20180903
  5. SOLU-MEDROL [Suspect]
     Active Substance: METHYLPREDNISOLONE SODIUM SUCCINATE
     Indication: PREMEDICATION
     Dosage: SOLUMEDROL 120 MG / 2 ML
     Route: 042
     Dates: start: 20181017, end: 20181017
  6. CALCIUM LEVOFOLINATE ZENTIVA [Suspect]
     Active Substance: LEVOLEUCOVORIN CALCIUM
     Indication: PROPHYLAXIS
     Dosage: ET B3419
     Route: 042

REACTIONS (5)
  - Pachymeningitis [Not Recovered/Not Resolved]
  - Chest pain [Recovered/Resolved]
  - Headache [Recovered/Resolved]
  - Ischaemic stroke [Recovered/Resolved with Sequelae]
  - Back pain [Recovered/Resolved]

NARRATIVE: CASE EVENT DATE: 20181017
